FAERS Safety Report 5670673-4 (Version None)
Quarter: 2008Q2

REPORT INFORMATION
  Report Type: 
  Country: None (occurrence: None)
  Receive Date: 20080305
  Receipt Date: 20070501
  Transmission Date: 20081010
  Serious: Yes (Hospitalization)
  Sender: FDA-Public Use
  Company Number: BDI-009486

PATIENT
  Age: 46 Year
  Sex: Female
  Weight: 81.8 kg

DRUGS (2)
  1. ISOVUE-370 [Suspect]
     Indication: CATHETERISATION CARDIAC
     Dosage: INTRA-ARTERIAL
     Route: 013
     Dates: start: 20070427, end: 20070427
  2. ISOVUE-370 [Suspect]
     Indication: HYPERTENSION
     Dosage: INTRA-ARTERIAL
     Route: 013
     Dates: start: 20070427, end: 20070427

REACTIONS (1)
  - HYPERSENSITIVITY [None]
